FAERS Safety Report 4650590-9 (Version None)
Quarter: 2005Q2

REPORT INFORMATION
  Report Type: 
  Country: None (occurrence: None)
  Receive Date: 20050429
  Receipt Date: 20050429
  Transmission Date: 20051028
  Serious: No
  Sender: FDA-Public Use
  Company Number: None

PATIENT
  Sex: Male
  Weight: 82.3 kg

DRUGS (11)
  1. CISPLATIN [Suspect]
     Dosage: 100 MG/M2 ON DAYS 1 AND 22
     Dates: start: 20050314
  2. RADIATION THERAPY [Suspect]
     Dosage: 72GY/42FX FOR 6 WEEKS
  3. ACETAMINOPHEN AND CODEINE PHOSPHATE [Concomitant]
  4. CIPRO [Concomitant]
  5. DOCUSATE SODIUM [Concomitant]
  6. MAGIC MOUTHWASH + FLAMAZINE CREAM [Concomitant]
  7. NYSTATIN [Concomitant]
  8. OXY IR [Concomitant]
  9. OXYCONTIN [Concomitant]
  10. SENOKOT [Concomitant]
  11. STEMENTIL [Concomitant]

REACTIONS (8)
  - BACTERIAL INFECTION [None]
  - FEBRILE NEUTROPENIA [None]
  - HAEMOGLOBIN DECREASED [None]
  - HYPOMAGNESAEMIA [None]
  - LEUKOPENIA [None]
  - LYMPHOPENIA [None]
  - MUCOSAL INFLAMMATION [None]
  - PAIN [None]
